FAERS Safety Report 23204415 (Version 1)
Quarter: 2023Q4

REPORT INFORMATION
  Report Type: Report from Study
  Country: CA (occurrence: CA)
  Receive Date: 20231120
  Receipt Date: 20231120
  Transmission Date: 20240109
  Serious: Yes (Hospitalization, Other)
  Sender: FDA-Public Use
  Company Number: CA-JNJFOC-20230764088

PATIENT
  Age: 41 Year
  Sex: Female
  Weight: 104 kg

DRUGS (2)
  1. REMICADE [Suspect]
     Active Substance: INFLIXIMAB
     Indication: Crohn^s disease
     Route: 042
     Dates: start: 20221114
  2. REMICADE [Suspect]
     Active Substance: INFLIXIMAB
     Dosage: REMICADE STARTED AGAIN IN HOSPITAL ON 25-JUL-2023.?THERAPY START DATE ALSO GIVEN AS 24-AUG-2023.
     Route: 042
     Dates: start: 20230725

REACTIONS (7)
  - Rectal haemorrhage [Unknown]
  - Anorectal disorder [Unknown]
  - Proctectomy [Unknown]
  - Post procedural complication [Unknown]
  - Abdominal pain [Unknown]
  - Treatment failure [Unknown]
  - Off label use [Unknown]

NARRATIVE: CASE EVENT DATE: 20230725
